FAERS Safety Report 12878939 (Version 3)
Quarter: 2017Q1

REPORT INFORMATION
  Report Type: Spontaneous
  Country: US (occurrence: US)
  Receive Date: 20161024
  Receipt Date: 20170202
  Transmission Date: 20170428
  Serious: Yes (Other)
  Sender: FDA-Public Use
  Company Number: PHEH2016US027382

PATIENT
  Sex: Male

DRUGS (2)
  1. AFINITOR [Suspect]
     Active Substance: EVEROLIMUS
     Indication: RENAL CANCER
     Dosage: 5 MG, QD
     Route: 048
  2. LENVATINIB [Suspect]
     Active Substance: LENVATINIB
     Indication: RENAL CANCER
     Dosage: 18 MG, UNK
     Route: 048
     Dates: start: 20160903

REACTIONS (4)
  - Visual impairment [Recovering/Resolving]
  - Blood pressure increased [Unknown]
  - Rash [Not Recovered/Not Resolved]
  - Eye haemorrhage [Recovering/Resolving]
